FAERS Safety Report 10613821 (Version 1)
Quarter: 2014Q4

REPORT INFORMATION
  Report Type: Spontaneous
  Country: US (occurrence: US)
  Receive Date: 20141128
  Receipt Date: 20141128
  Transmission Date: 20150529
  Serious: No
  Sender: FDA-Public Use
  Company Number: US-GLAXOSMITHKLINE-A1066094A

PATIENT

DRUGS (3)
  1. NO CONCURRENT MEDICATION [Concomitant]
     Active Substance: UNSPECIFIED INGREDIENT
  2. BUPROPION HYDROCHLORIDE PROLONGED-RELEASE TABLET [Suspect]
     Active Substance: BUPROPION HYDROCHLORIDE
     Indication: DEPRESSION
     Route: 048
  3. BUPROPION HYDROCHLORIDE PROLONGED-RELEASE TABLET [Suspect]
     Active Substance: BUPROPION HYDROCHLORIDE
     Indication: ANXIETY

REACTIONS (1)
  - Drug ineffective [Recovered/Resolved with Sequelae]
